FAERS Safety Report 20881782 (Version 1)
Quarter: 2022Q2

REPORT INFORMATION
  Report Type: Spontaneous
  Country: US (occurrence: None)
  Receive Date: 20220527
  Receipt Date: 20220527
  Transmission Date: 20220720
  Serious: Yes (Other)
  Sender: FDA-Public Use
  Company Number: US-ROCHE-3098113

PATIENT
  Sex: Female

DRUGS (1)
  1. AVASTIN [Suspect]
     Active Substance: BEVACIZUMAB
     Indication: Product used for unknown indication
     Route: 065

REACTIONS (14)
  - Lymphadenopathy [Unknown]
  - Metastases to peritoneum [Unknown]
  - Disease progression [Unknown]
  - Neuropathy peripheral [Unknown]
  - Vomiting [Unknown]
  - Abdominal pain [Unknown]
  - Constipation [Unknown]
  - Mucosal inflammation [Unknown]
  - Dyspnoea [Unknown]
  - Fatigue [Unknown]
  - Proteinuria [Unknown]
  - Thyroid disorder [Unknown]
  - Decreased appetite [Unknown]
  - Nausea [Unknown]
